FAERS Safety Report 9523829 (Version 1)
Quarter: 2013Q3

REPORT INFORMATION
  Report Type: Spontaneous
  Country: US (occurrence: None)
  Receive Date: 20130912
  Receipt Date: 20130912
  Transmission Date: 20140515
  Serious: Yes (Other)
  Sender: FDA-Public Use
  Company Number: 001203865A

PATIENT
  Sex: Female

DRUGS (1)
  1. MEANINGFUL BEAUTY ANTIOXIDANT DAY CREME SPF 20 [Suspect]
     Dosage: DERMAL
     Dates: start: 20120417

REACTIONS (3)
  - Erythema [None]
  - Urticaria [None]
  - Wheezing [None]
